FAERS Safety Report 15314098 (Version 2)
Quarter: 2018Q3

REPORT INFORMATION
  Report Type: Spontaneous
  Country: RO (occurrence: RO)
  Receive Date: 20180824
  Receipt Date: 20180903
  Transmission Date: 20181010
  Serious: Yes (Life-Threatening, Hospitalization, Other)
  Sender: FDA-Public Use
  Company Number: RO-AUROBINDO-AUR-APL-2018-043038

PATIENT
  Age: 60 Year
  Sex: Male

DRUGS (7)
  1. HARVONI [Suspect]
     Active Substance: LEDIPASVIR\SOFOSBUVIR
     Indication: HEPATIC CIRRHOSIS
  2. ESSENTIALE                         /00022201/ [Concomitant]
     Indication: PRODUCT USED FOR UNKNOWN INDICATION
     Dosage: UNK
     Route: 065
  3. URSOFALK [Concomitant]
     Active Substance: URSODIOL
     Indication: PRODUCT USED FOR UNKNOWN INDICATION
     Dosage: UNK
     Route: 065
  4. SILIMARINA [Concomitant]
     Indication: PRODUCT USED FOR UNKNOWN INDICATION
     Dosage: UNK
     Route: 065
  5. INSULIN [Concomitant]
     Active Substance: INSULIN NOS
     Indication: PRODUCT USED FOR UNKNOWN INDICATION
     Dosage: UNK
     Route: 065
  6. RIBAVIRIN FILM COATED TABLETS [Suspect]
     Active Substance: RIBAVIRIN
     Indication: PRODUCT USED FOR UNKNOWN INDICATION
     Dosage: UNK
     Route: 048
  7. HARVONI [Suspect]
     Active Substance: LEDIPASVIR\SOFOSBUVIR
     Indication: HEPATITIS C
     Dosage: 1 DOSAGE FORM, ONCE A DAY
     Route: 048
     Dates: start: 20180509

REACTIONS (6)
  - Cardio-respiratory arrest [Not Recovered/Not Resolved]
  - Endotracheal intubation [Unknown]
  - Malaise [Not Recovered/Not Resolved]
  - Weight decreased [Unknown]
  - Dysphagia [Unknown]
  - Tracheostomy [Not Recovered/Not Resolved]

NARRATIVE: CASE EVENT DATE: 201807
